FAERS Safety Report 4360297-3 (Version None)
Quarter: 2004Q2

REPORT INFORMATION
  Report Type: 
  Country: None (occurrence: None)
  Receive Date: 20040519
  Receipt Date: 20040510
  Transmission Date: 20050107
  Serious: Yes (Hospitalization)
  Sender: FDA-Public Use
  Company Number: GB-JNJFOC-20040501890

PATIENT
  Sex: Female

DRUGS (9)
  1. REMICADE [Suspect]
     Indication: RHEUMATOID ARTHRITIS
     Route: 042
  2. METHOTREXATE [Concomitant]
  3. AMITRIPTYLINE HCL [Concomitant]
  4. PREDNISOLONE [Concomitant]
  5. SULPHASALAZINE [Concomitant]
  6. ESOMEPRAZOLE [Concomitant]
  7. CO-CODAMOL [Concomitant]
  8. CO-CODAMOL [Concomitant]
  9. VISCOTEARS [Concomitant]

REACTIONS (2)
  - LYMPHADENOPATHY [None]
  - TUBERCULOSIS [None]
